FAERS Safety Report 8432841-8 (Version None)
Quarter: 2012Q2

REPORT INFORMATION
  Report Type: 
  Country: None (occurrence: None)
  Receive Date: 20120323
  Receipt Date: 20111122
  Transmission Date: 20120825
  Serious: Yes (Death)
  Sender: FDA-Public Use
  Company Number: 163-21880-11071649

PATIENT
  Age: 82 Year
  Sex: Female

DRUGS (4)
  1. NEXIUM [Concomitant]
  2. PREDNISONE TAB [Concomitant]
  3. REVLIMID [Suspect]
     Indication: MULTIPLE MYELOMA
     Dosage: 10 MG, 1 IN 1 D, PO
     Route: 048
     Dates: start: 20110601, end: 20110620
  4. SENNA (SENNA) [Concomitant]

REACTIONS (1)
  - PNEUMONIA [None]
